FAERS Safety Report 6913461-0 (Version None)
Quarter: 2010Q3

REPORT INFORMATION
  Report Type: 
  Country: None (occurrence: None)
  Receive Date: 20100716
  Receipt Date: 20100114
  Transmission Date: 20110219
  Serious: Yes (Other)
  Sender: FDA-Public Use
  Company Number: 2009268018

PATIENT
  Age: 58 Year
  Sex: Male
  Weight: 78 kg

DRUGS (5)
  1. CELEBREX [Suspect]
     Indication: ARTHROPATHY
     Dosage: ORAL
     Route: 048
     Dates: start: 20090827, end: 20090907
  2. CELEBREX [Suspect]
     Indication: PAIN
     Dosage: ORAL
     Route: 048
     Dates: start: 20090827, end: 20090907
  3. TOPROL-XL [Concomitant]
  4. OMEPRAZOLE [Concomitant]
  5. LIPITOR [Concomitant]

REACTIONS (3)
  - LIP SWELLING [None]
  - RASH [None]
  - SWELLING FACE [None]
